FAERS Safety Report 15832987 (Version 1)
Quarter: 2019Q1

REPORT INFORMATION
  Report Type: Spontaneous
  Country: US (occurrence: US)
  Receive Date: 20190114
  Receipt Date: 20190114
  Transmission Date: 20190417
  Serious: No
  Sender: FDA-Public Use
  Company Number: None

PATIENT
  Age: 48 Year
  Sex: Male
  Weight: 100.8 kg

DRUGS (2)
  1. MIDAZOLAM [Suspect]
     Active Substance: MIDAZOLAM HYDROCHLORIDE
     Indication: SURGERY
     Route: 042
     Dates: start: 20180612, end: 20180612
  2. GENTAMICIN. [Suspect]
     Active Substance: GENTAMICIN
     Route: 042
     Dates: start: 20180612, end: 20180612

REACTIONS (7)
  - Wheezing [None]
  - Rash [None]
  - Hypoxia [None]
  - Bronchial hyperreactivity [None]
  - Pruritus [None]
  - Urticaria [None]
  - Cough [None]

NARRATIVE: CASE EVENT DATE: 20180612
